FAERS Safety Report 7778749-2 (Version None)
Quarter: 2011Q3

REPORT INFORMATION
  Report Type: 
  Country: None (occurrence: None)
  Receive Date: 20110926
  Receipt Date: 20110916
  Transmission Date: 20111222
  Serious: Yes (Hospitalization)
  Sender: FDA-Public Use
  Company Number: US-BAYER-2011-019340

PATIENT
  Age: 19 Year
  Sex: Female
  Weight: 61 kg

DRUGS (11)
  1. YASMIN [Suspect]
     Indication: MENSTRUATION IRREGULAR
  2. ADDERALL 5 [Concomitant]
     Indication: ATTENTION DEFICIT/HYPERACTIVITY DISORDER
     Dosage: UNK
     Dates: start: 20020101, end: 20100101
  3. EFFEXOR [Concomitant]
     Indication: DEPRESSION
  4. VALTREX [Concomitant]
     Dosage: UNK
     Dates: start: 20051001
  5. IBUPROFEN [Concomitant]
     Indication: PAIN
     Dosage: UNK
     Dates: start: 20060101
  6. YASMIN [Suspect]
     Indication: CONTRACEPTION
  7. EFFEXOR [Concomitant]
     Indication: ANXIETY
     Dosage: UNK
     Dates: start: 20050101, end: 20080101
  8. YASMIN [Suspect]
     Indication: PREMENSTRUAL SYNDROME
  9. YASMIN [Suspect]
     Indication: ACNE
     Dosage: UNK
     Dates: start: 20021201, end: 20060101
  10. ACETAMINOPHEN [Concomitant]
     Indication: PAIN
     Dosage: UNK
     Dates: start: 20060101
  11. PAXIL [Concomitant]
     Indication: DEPRESSION
     Dosage: UNK
     Dates: start: 20031201, end: 20050201

REACTIONS (3)
  - PULMONARY EMBOLISM [None]
  - DYSPNOEA [None]
  - CHEST PAIN [None]
